FAERS Safety Report 7528076-3 (Version None)
Quarter: 2011Q2

REPORT INFORMATION
  Report Type: 
  Country: None (occurrence: None)
  Receive Date: 20110607
  Receipt Date: 20110524
  Transmission Date: 20111010
  Serious: Yes (Hospitalization)
  Sender: FDA-Public Use
  Company Number: US-BAYER-201033776NA

PATIENT
  Age: 25 Year
  Sex: Female
  Weight: 77 kg

DRUGS (10)
  1. ELESTAT [Concomitant]
  2. PROAIR HFA [Concomitant]
     Dosage: UNK UNK, BID
  3. VENTOLIN HFA [Concomitant]
     Indication: ASTHMA
     Dates: start: 20040101
  4. ADVAIR DISKUS 100/50 [Concomitant]
  5. ALBUTEROL SULFATE AUTOHALER [Concomitant]
  6. IBUPROFEN [Concomitant]
  7. TRAMADOL HCL [Concomitant]
     Indication: PAIN
  8. YAZ [Suspect]
     Indication: MENSTRUAL CYCLE MANAGEMENT
     Dosage: UNK UNK, UNK
     Route: 048
     Dates: start: 20070101, end: 20080901
  9. YAZ [Suspect]
     Indication: ORAL CONTRACEPTION
  10. MOBIC [Concomitant]
     Indication: PAIN

REACTIONS (6)
  - CHOLECYSTITIS [None]
  - CHOLELITHIASIS [None]
  - ABDOMINAL PAIN UPPER [None]
  - DYSPEPSIA [None]
  - VOMITING [None]
  - ABDOMINAL TENDERNESS [None]
